FAERS Safety Report 8125603-2 (Version None)
Quarter: 2012Q1

REPORT INFORMATION
  Report Type: 
  Country: None (occurrence: None)
  Receive Date: 20120209
  Receipt Date: 20120203
  Transmission Date: 20120608
  Serious: Yes (Death, Other)
  Sender: FDA-Public Use
  Company Number: US-PFIZER INC-2011206869

PATIENT
  Sex: Male

DRUGS (10)
  1. MESALAZINE [Concomitant]
     Indication: CROHN'S DISEASE
     Dosage: 250 MG, UNK
     Dates: start: 20060801, end: 20090901
  2. TRICOR [Concomitant]
     Indication: BLOOD CHOLESTEROL
     Dosage: 145 MG, UNK
     Dates: start: 20071001, end: 20090901
  3. CHANTIX [Suspect]
     Indication: SMOKING CESSATION THERAPY
     Dosage: 0.5 GMS (11) TO 1 MG (3X14)
     Dates: start: 20090101, end: 20090901
  4. ACIPHEX [Concomitant]
     Indication: GASTROOESOPHAGEAL REFLUX DISEASE
     Dosage: 20 MG, UNK
     Dates: start: 20071001, end: 20090901
  5. NORVASC [Concomitant]
     Indication: BLOOD PRESSURE
     Dosage: 5 MG, UNK
     Dates: start: 20090301, end: 20090901
  6. MOTRIN [Concomitant]
     Indication: ANALGESIC THERAPY
     Dosage: 800 MG, UNK
     Dates: start: 20071001, end: 20090901
  7. NORVASC [Concomitant]
     Indication: CHEST PAIN
  8. LOPRESSOR [Concomitant]
     Indication: HYPERTENSION
     Dosage: 50 MG, UNK
     Dates: start: 19881201, end: 20090901
  9. LIPITOR [Concomitant]
     Indication: CARDIAC DISORDER
     Dosage: 80 MG, UNK
     Dates: start: 20071001, end: 20090901
  10. ZETIA [Concomitant]
     Indication: BLOOD CHOLESTEROL
     Dosage: 10 MG, UNK
     Dates: start: 20090101, end: 20090901

REACTIONS (6)
  - HEART RATE INCREASED [None]
  - SUDDEN CARDIAC DEATH [None]
  - ANGINA PECTORIS [None]
  - ROAD TRAFFIC ACCIDENT [None]
  - CARDIAC DISORDER [None]
  - PALPITATIONS [None]
